FAERS Safety Report 11572970 (Version 4)
Quarter: 2015Q4

REPORT INFORMATION
  Report Type: Report from Study
  Country: BE (occurrence: BE)
  Receive Date: 20150929
  Receipt Date: 20151208
  Transmission Date: 20160304
  Serious: Yes (Hospitalization)
  Sender: FDA-Public Use
  Company Number: BE-ABBVIE-15P-013-1353106-00

PATIENT
  Sex: Male

DRUGS (6)
  1. DUODOPA [Suspect]
     Active Substance: CARBIDOPA\LEVODOPA
     Dosage: AM = 2 ML, CD = 1.5 ML/H DURING 16H, ED = 1 ML
     Route: 050
     Dates: start: 20150715
  2. DUODOPA [Suspect]
     Active Substance: CARBIDOPA\LEVODOPA
     Dosage: UNKNOWN
     Route: 050
     Dates: start: 20150518, end: 20150715
  3. DUODOPA [Suspect]
     Active Substance: CARBIDOPA\LEVODOPA
     Dosage: DOSAGE CONTINUOUSLY MONITORED AND ADJUSTED
     Route: 050
     Dates: start: 20130524, end: 20141024
  4. DUODOPA [Suspect]
     Active Substance: CARBIDOPA\LEVODOPA
     Dosage: AM 1.3ML, CD 1.4ML/H DURING 16 HRS, ED 1ML
     Route: 050
     Dates: start: 20141024, end: 20150518
  5. LEVODOPA/CARBIDOPA/ENTACAPON (STALEVO 50) [Concomitant]
     Indication: PARKINSON^S DISEASE
     Dosage: 50/12.5/200MG, EMERGENCY MEDICATION: 6 IN 1 DAY
  6. DUODOPA [Suspect]
     Active Substance: CARBIDOPA\LEVODOPA
     Indication: PARKINSON^S DISEASE
     Dosage: AM 2ML, CD 1.6ML/H DURING 16 HRS, ED 1ML
     Route: 050
     Dates: start: 20130521, end: 20130524

REACTIONS (8)
  - On and off phenomenon [Unknown]
  - Dyskinesia [Recovering/Resolving]
  - Fall [Unknown]
  - Nervousness [Unknown]
  - Device issue [Recovered/Resolved]
  - Hallucination [Recovering/Resolving]
  - Freezing phenomenon [Unknown]
  - Asthenia [Unknown]
